FAERS Safety Report 9835781 (Version 1)
Quarter: 2014Q1

REPORT INFORMATION
  Report Type: Spontaneous
  Country: DE (occurrence: DE)
  Receive Date: 20140122
  Receipt Date: 20140122
  Transmission Date: 20141002
  Serious: Yes (Other)
  Sender: FDA-Public Use
  Company Number: PHHY2014DE005174

PATIENT
  Age: 9 Year
  Sex: Male

DRUGS (2)
  1. RITALIN LA [Suspect]
     Dosage: UNK UKN, UNK
     Route: 048
  2. MEDIKINET//METHYLPHENIDATE HYDROCHLORIDE [Suspect]
     Dosage: 5 MG, UNK
     Route: 048

REACTIONS (4)
  - Benign intracranial hypertension [Unknown]
  - Hemiplegia [Unknown]
  - Neurological symptom [Unknown]
  - Convulsion [Unknown]
